FAERS Safety Report 6007751-6 (Version None)
Quarter: 2008Q4

REPORT INFORMATION
  Report Type: 
  Country: None (occurrence: None)
  Receive Date: 20081217
  Receipt Date: 20080528
  Transmission Date: 20090506
  Serious: No
  Sender: FDA-Public Use
  Company Number: US-ASTRAZENECA-2008UW10813

PATIENT
  Age: 68 Year
  Sex: Male
  Weight: 74.8 kg

DRUGS (5)
  1. CRESTOR [Suspect]
     Indication: BLOOD CHOLESTEROL INCREASED
     Route: 048
     Dates: start: 20080501
  2. METOPROLOL TARTRATE [Concomitant]
  3. PLAVIX [Concomitant]
  4. PROZAC [Concomitant]
  5. ARGININE [Concomitant]

REACTIONS (2)
  - ABNORMAL DREAMS [None]
  - THERAPEUTIC RESPONSE UNEXPECTED [None]
